FAERS Safety Report 4586378-7 (Version None)
Quarter: 2005Q1

REPORT INFORMATION
  Report Type: 
  Country: None (occurrence: None)
  Receive Date: 20050125
  Receipt Date: 20040909
  Transmission Date: 20050727
  Serious: No
  Sender: FDA-Public Use
  Company Number: USA040977748

PATIENT
  Age: 71 Year
  Sex: Female
  Weight: 86 kg

DRUGS (3)
  1. FORTEO [Suspect]
     Indication: OSTEOPOROSIS
     Dates: start: 20040825
  2. SYNTHROID [Concomitant]
  3. CORTISONE [Concomitant]

REACTIONS (6)
  - ARTHRALGIA [None]
  - DIZZINESS [None]
  - HEADACHE [None]
  - JOINT SWELLING [None]
  - MOBILITY DECREASED [None]
  - NAUSEA [None]
